FAERS Safety Report 24009251 (Version 1)
Quarter: 2024Q2

REPORT INFORMATION
  Report Type: Spontaneous
  Country: US (occurrence: None)
  Receive Date: 20240624
  Receipt Date: 20240624
  Transmission Date: 20240715
  Serious: Yes (Hospitalization)
  Sender: FDA-Public Use
  Company Number: None

PATIENT
  Sex: Female

DRUGS (4)
  1. ACTEMRA [Suspect]
     Active Substance: TOCILIZUMAB
     Dosage: OTHER QUANTITY : 162MG/0.9ML;?FREQUENCY : EVERY OTHER WEEK;?
     Route: 058
     Dates: start: 20230826
  2. CARVEDILOL [Concomitant]
     Active Substance: CARVEDILOL
  3. CYMBALTA [Concomitant]
     Active Substance: DULOXETINE HYDROCHLORIDE
  4. ETODOLAC [Concomitant]
     Active Substance: ETODOLAC

REACTIONS (1)
  - White blood cell count decreased [None]
